FAERS Safety Report 16243392 (Version 1)
Quarter: 2019Q2

REPORT INFORMATION
  Report Type: Other
  Country: GB (occurrence: GB)
  Receive Date: 20190426
  Receipt Date: 20190426
  Transmission Date: 20190711
  Serious: Yes (Other)
  Sender: FDA-Public Use
  Company Number: GB-HERITAGE PHARMACEUTICALS-2019HTG00171

PATIENT
  Age: 18 Year
  Sex: Female

DRUGS (2)
  1. MEFENAMIC ACID. [Concomitant]
     Active Substance: MEFENAMIC ACID
  2. FLUOXETINE [Suspect]
     Active Substance: FLUOXETINE HYDROCHLORIDE
     Indication: ANXIETY
     Dosage: 20 MG, 1X/DAY
     Route: 048
     Dates: start: 20190322

REACTIONS (2)
  - Off label use [Unknown]
  - Vaginal haemorrhage [Not Recovered/Not Resolved]

NARRATIVE: CASE EVENT DATE: 20190322
